FAERS Safety Report 5276891-1 (Version None)
Quarter: 2007Q1

REPORT INFORMATION
  Report Type: 
  Country: None (occurrence: None)
  Receive Date: 20070327
  Receipt Date: 20070316
  Transmission Date: 20070707
  Serious: Yes (Hospitalization)
  Sender: FDA-Public Use
  Company Number: PHHO2005DE12163

PATIENT
  Age: 73 Year
  Sex: Male
  Weight: 98 kg

DRUGS (1)
  1. SANDOSTATIN LAR [Suspect]
     Indication: DIABETIC RETINOPATHY
     Dates: start: 20050519

REACTIONS (3)
  - CONCOMITANT DISEASE PROGRESSION [None]
  - CORONARY ANGIOPLASTY [None]
  - SILENT MYOCARDIAL INFARCTION [None]
